FAERS Safety Report 11661518 (Version 1)
Quarter: 2015Q4

REPORT INFORMATION
  Report Type: Spontaneous
  Country: US (occurrence: US)
  Receive Date: 20151026
  Receipt Date: 20151026
  Transmission Date: 20160304
  Serious: No
  Sender: FDA-Public Use
  Company Number: US-BAUSCH-BL-2015-020733

PATIENT
  Sex: Female

DRUGS (5)
  1. SOOTHE HYDRATION [Suspect]
     Active Substance: POVIDONE
     Indication: DRY EYE
     Dosage: AS NEEDED
     Route: 047
     Dates: start: 2015
  2. PROLENSA [Suspect]
     Active Substance: BROMFENAC SODIUM
     Dosage: IN LEFT EYE.
     Route: 031
     Dates: start: 201508
  3. PROLENSA [Suspect]
     Active Substance: BROMFENAC SODIUM
     Indication: CATARACT OPERATION
     Dosage: IN RIGHT EYE.
     Route: 047
     Dates: start: 201507
  4. ATORVASTATIN [Concomitant]
     Active Substance: ATORVASTATIN
     Indication: DYSLIPIDAEMIA
     Route: 048
  5. TELMISARTAN. [Concomitant]
     Active Substance: TELMISARTAN
     Indication: HYPERTENSION
     Route: 048

REACTIONS (2)
  - Eye irritation [Recovering/Resolving]
  - Ocular hyperaemia [Recovering/Resolving]

NARRATIVE: CASE EVENT DATE: 2015
